FAERS Safety Report 4479475-8 (Version None)
Quarter: 2004Q4

REPORT INFORMATION
  Report Type: 
  Country: None (occurrence: None)
  Receive Date: 20041015
  Receipt Date: 20041001
  Transmission Date: 20050328
  Serious: Yes (Life-Threatening, Hospitalization)
  Sender: FDA-Public Use
  Company Number: 2004237049IT

PATIENT
  Age: 65 Year
  Sex: Female

DRUGS (2)
  1. CABERGOLINE [Suspect]
     Indication: PARKINSON'S DISEASE
     Dosage: 3 MG/DAY, ORAL
     Route: 048
  2. LEVODOPA [Concomitant]

REACTIONS (1)
  - CARDIAC VALVE DISEASE [None]
